FAERS Safety Report 19952365 (Version 3)
Quarter: 2021Q4

REPORT INFORMATION
  Report Type: Spontaneous
  Country: CA (occurrence: CA)
  Receive Date: 20211014
  Receipt Date: 20211229
  Transmission Date: 20220303
  Serious: Yes (Death, Other)
  Sender: FDA-Public Use
  Company Number: CA-CELLTRION INC.-2021CA014027

PATIENT

DRUGS (2)
  1. INFLECTRA [Suspect]
     Active Substance: INFLIXIMAB-DYYB
     Indication: Colitis ulcerative
     Dosage: 300 MG, FREQUENCY: 4 WEEKS
     Route: 064
     Dates: start: 20210113
  2. INFLECTRA [Suspect]
     Active Substance: INFLIXIMAB-DYYB
     Dosage: 300 MG, FREQUENCY: 4 WEEKS
     Route: 064
     Dates: start: 20210422

REACTIONS (2)
  - Foetal exposure during pregnancy [Fatal]
  - Trisomy 16 [Fatal]
